FAERS Safety Report 5352567-7 (Version None)
Quarter: 2007Q2

REPORT INFORMATION
  Report Type: 
  Country: None (occurrence: None)
  Receive Date: 20070611
  Receipt Date: 20070604
  Transmission Date: 20071010
  Serious: Yes (Hospitalization)
  Sender: FDA-Public Use
  Company Number: GB-ROCHE-501429

PATIENT
  Age: 79 Year
  Sex: Female
  Weight: 104 kg

DRUGS (3)
  1. XENICAL [Suspect]
     Indication: OBESITY
     Route: 048
     Dates: start: 20070510, end: 20070525
  2. ASPIRIN [Concomitant]
     Route: 048
  3. OMEPRAZOLE [Concomitant]
     Indication: GASTRIC DISORDER

REACTIONS (3)
  - BLOOD GLUCOSE INCREASED [None]
  - COUGH [None]
  - MALAISE [None]
